FAERS Safety Report 5140333-7 (Version None)
Quarter: 2006Q4

REPORT INFORMATION
  Report Type: 
  Country: None (occurrence: None)
  Receive Date: 20061024
  Receipt Date: 20061010
  Transmission Date: 20070319
  Serious: Yes (Other)
  Sender: FDA-Public Use
  Company Number: US200610001942

PATIENT
  Sex: Female

DRUGS (2)
  1. HUMAN INSULIN (RDNA) (HUMAN INSULIN (RDNA ORIGIN) [Suspect]
  2. LANTUS [Concomitant]

REACTIONS (3)
  - CORNEAL DISORDER [None]
  - DIABETES MELLITUS INADEQUATE CONTROL [None]
  - EYE HAEMORRHAGE [None]
